FAERS Safety Report 4832806-9 (Version None)
Quarter: 2005Q4

REPORT INFORMATION
  Report Type: 
  Country: None (occurrence: None)
  Receive Date: 20051117
  Receipt Date: 20051102
  Transmission Date: 20060501
  Serious: Yes (Hospitalization, Other)
  Sender: FDA-Public Use
  Company Number: USA040465347

PATIENT
  Age: 64 Year
  Sex: Female

DRUGS (7)
  1. EVISTA [Suspect]
     Dates: start: 20030101
  2. FORTEO [Suspect]
     Indication: OSTEOPOROSIS
     Dates: start: 20040415
  3. PLAVIX [Concomitant]
  4. PREVACID [Concomitant]
  5. ASPIRIN [Concomitant]
  6. LISINOPRIL [Concomitant]
  7. LASIX [Concomitant]

REACTIONS (50)
  - ACUTE MYOCARDIAL INFARCTION [None]
  - AKINESIA [None]
  - ANAEMIA [None]
  - ANOREXIA [None]
  - BLOOD CHLORIDE DECREASED [None]
  - BLOOD GLUCOSE INCREASED [None]
  - BLOOD SODIUM DECREASED [None]
  - CARBON DIOXIDE DECREASED [None]
  - CARDIAC FAILURE CONGESTIVE [None]
  - COMPLICATION OF DEVICE REMOVAL [None]
  - COMPRESSION FRACTURE [None]
  - CORONARY ARTERIAL STENT INSERTION [None]
  - DEPRESSION [None]
  - DEVICE FAILURE [None]
  - DIABETES MELLITUS INSULIN-DEPENDENT [None]
  - DIARRHOEA [None]
  - DIZZINESS [None]
  - DYSPHAGIA [None]
  - FALL [None]
  - GASTRITIS [None]
  - HAEMOPHILUS INFECTION [None]
  - HEAD LAG [None]
  - HYPERGLYCAEMIA [None]
  - HYPONATRAEMIA [None]
  - LEUKOCYTOSIS [None]
  - LUNG INFILTRATION [None]
  - MASS [None]
  - METABOLIC ALKALOSIS [None]
  - NAUSEA [None]
  - NERVE INJURY [None]
  - OSTEOARTHRITIS [None]
  - OXYGEN SATURATION DECREASED [None]
  - PAIN [None]
  - PHARMACEUTICAL PRODUCT COMPLAINT [None]
  - PLEURAL EFFUSION [None]
  - PNEUMONIA ASPIRATION [None]
  - POST PROCEDURAL COMPLICATION [None]
  - PULMONARY HYPERTENSION [None]
  - RESPIRATORY FAILURE [None]
  - SOFT TISSUE DISORDER [None]
  - SPINAL CORD COMPRESSION [None]
  - SPINAL OSTEOARTHRITIS [None]
  - TOOTH DISORDER [None]
  - TRACHEOBRONCHITIS [None]
  - URINARY TRACT INFECTION [None]
  - VASCULAR PSEUDOANEURYSM [None]
  - VENTRICULAR DYSFUNCTION [None]
  - VOCAL CORD PARALYSIS [None]
  - VOCAL CORD PARESIS [None]
  - VOMITING [None]
